FAERS Safety Report 8329556 (Version 27)
Quarter: 2016Q2

REPORT INFORMATION
  Report Type: Spontaneous
  Country: CA (occurrence: CA)
  Receive Date: 20120110
  Receipt Date: 20160405
  Transmission Date: 20160815
  Serious: Yes (Other)
  Sender: FDA-Public Use
  Company Number: CA-ROCHE-1026851

PATIENT
  Age: 54 Year
  Sex: Female
  Weight: 58 kg

DRUGS (30)
  1. XOLAIR [Suspect]
     Active Substance: OMALIZUMAB
     Route: 058
     Dates: start: 20141110
  2. XOLAIR [Suspect]
     Active Substance: OMALIZUMAB
     Route: 058
     Dates: start: 20160104
  3. SINGULAIR [Concomitant]
     Active Substance: MONTELUKAST SODIUM
  4. ATROVENT [Concomitant]
     Active Substance: IPRATROPIUM BROMIDE
     Route: 065
     Dates: start: 20141007
  5. CLARITHROMYCIN. [Concomitant]
     Active Substance: CLARITHROMYCIN
  6. VENTOLIN [Concomitant]
     Active Substance: ALBUTEROL SULFATE
     Route: 065
     Dates: start: 20141007
  7. XOLAIR [Suspect]
     Active Substance: OMALIZUMAB
     Indication: RHINITIS
     Route: 058
     Dates: start: 20110214
  8. CYCLOBENZAPRINE [Concomitant]
     Active Substance: CYCLOBENZAPRINE
  9. FLOVENT [Concomitant]
     Active Substance: FLUTICASONE PROPIONATE
  10. CALCIUM CARBONATE. [Concomitant]
     Active Substance: CALCIUM CARBONATE
  11. PHENOBARBITAL. [Concomitant]
     Active Substance: PHENOBARBITAL
  12. XOLAIR [Suspect]
     Active Substance: OMALIZUMAB
     Route: 058
     Dates: start: 20150330
  13. ADVAIR HFA [Concomitant]
     Active Substance: FLUTICASONE PROPIONATE\SALMETEROL XINAFOATE
  14. SYMBICORT [Concomitant]
     Active Substance: BUDESONIDE\FORMOTEROL FUMARATE DIHYDRATE
  15. PULMICORT TURBUHALER [Concomitant]
     Active Substance: BUDESONIDE
  16. XOLAIR [Suspect]
     Active Substance: OMALIZUMAB
     Indication: ASTHMA
     Route: 058
     Dates: start: 20100310
  17. XOLAIR [Suspect]
     Active Substance: OMALIZUMAB
     Route: 058
     Dates: start: 20160301
  18. XOLAIR [Suspect]
     Active Substance: OMALIZUMAB
     Route: 058
     Dates: start: 20160329
  19. REACTINE (CANADA) [Concomitant]
     Active Substance: CETIRIZINE HYDROCHLORIDE
  20. NASONEX [Concomitant]
     Active Substance: MOMETASONE FUROATE
  21. PANTOPRAZOL [Concomitant]
     Active Substance: PANTOPRAZOLE SODIUM
     Route: 065
     Dates: end: 20150329
  22. BISMUTH SUBNITRATE [Concomitant]
     Active Substance: BISMUTH SUBNITRATE
  23. XOLAIR [Suspect]
     Active Substance: OMALIZUMAB
     Route: 058
     Dates: start: 20130402
  24. XOLAIR [Suspect]
     Active Substance: OMALIZUMAB
     Route: 058
     Dates: start: 20130430
  25. MAGNESIUM CITRATE. [Suspect]
     Active Substance: MAGNESIUM CITRATE
     Indication: CONSTIPATION
     Route: 065
  26. TAMOXIFEN [Concomitant]
     Active Substance: TAMOXIFEN
  27. CALCIUM BICARBONATE [Concomitant]
  28. TYLENOL [Suspect]
     Active Substance: ACETAMINOPHEN
     Indication: PRODUCT USED FOR UNKNOWN INDICATION
     Route: 065
  29. PREDNISONE. [Concomitant]
     Active Substance: PREDNISONE
     Route: 065
     Dates: start: 20141016
  30. ATROVENT [Concomitant]
     Active Substance: IPRATROPIUM BROMIDE
     Route: 065

REACTIONS (50)
  - Nasopharyngitis [Unknown]
  - Injection site coldness [Unknown]
  - Wheezing [Unknown]
  - Nasal congestion [Unknown]
  - Rhonchi [Unknown]
  - Viral infection [Unknown]
  - Abdominal pain upper [Recovering/Resolving]
  - Limb discomfort [Unknown]
  - Feeling cold [Unknown]
  - Pneumonia [Unknown]
  - Bronchitis [Recovered/Resolved]
  - Asthenia [Unknown]
  - Tremor [Unknown]
  - Injection site warmth [Unknown]
  - Eye infection [Unknown]
  - Injection site pain [Unknown]
  - Influenza [Recovered/Resolved]
  - Fall [Unknown]
  - Dyspnoea [Recovered/Resolved]
  - Diarrhoea [Unknown]
  - Injection site discomfort [Unknown]
  - Rhinorrhoea [Unknown]
  - Body temperature decreased [Unknown]
  - Haemangioma [Unknown]
  - Hypoaesthesia [Unknown]
  - Pericarditis [Unknown]
  - Bronchiectasis [Unknown]
  - Pancreatitis [Unknown]
  - Oropharyngeal pain [Recovered/Resolved]
  - Breath sounds abnormal [Unknown]
  - Cough [Not Recovered/Not Resolved]
  - Pain [Unknown]
  - Weight decreased [Unknown]
  - Gastritis [Unknown]
  - Bronchopulmonary aspergillosis allergic [Unknown]
  - Sinusitis [Unknown]
  - Dysphonia [Unknown]
  - Hypersensitivity [Unknown]
  - Productive cough [Unknown]
  - Chronic obstructive pulmonary disease [Unknown]
  - Pain in extremity [Unknown]
  - Gluten sensitivity [Unknown]
  - Ear infection [Unknown]
  - Vulvovaginal mycotic infection [Unknown]
  - Lung infection [Unknown]
  - Pericardial effusion [Unknown]
  - Accident [Unknown]
  - Malaise [Unknown]
  - Constipation [Unknown]
  - Contusion [Unknown]

NARRATIVE: CASE EVENT DATE: 20110214
